FAERS Safety Report 23487006 (Version 1)
Quarter: 2024Q1

REPORT INFORMATION
  Report Type: Spontaneous
  Country: IT (occurrence: IT)
  Receive Date: 20240206
  Receipt Date: 20240206
  Transmission Date: 20240410
  Serious: Yes (Life-Threatening, Hospitalization)
  Sender: FDA-Public Use
  Company Number: IT-MYLANLABS-2024M1011479

PATIENT
  Age: 36 Year
  Sex: Female

DRUGS (9)
  1. AMIODARONE [Suspect]
     Active Substance: AMIODARONE
     Indication: Torsade de pointes
     Dosage: UNK
     Route: 042
  2. VERAPAMIL [Suspect]
     Active Substance: VERAPAMIL HYDROCHLORIDE
     Indication: Arrhythmic storm
     Dosage: UNK
     Route: 042
  3. FLECAINIDE [Suspect]
     Active Substance: FLECAINIDE
     Indication: Arrhythmic storm
     Dosage: UNK
     Route: 042
  4. MAGNESIUM SULFATE [Suspect]
     Active Substance: MAGNESIUM SULFATE\MAGNESIUM SULFATE HEPTAHYDRATE
     Indication: Torsade de pointes
     Dosage: UNK (INFUSION)
     Route: 065
  5. LIDOCAINE [Suspect]
     Active Substance: LIDOCAINE
     Indication: Torsade de pointes
     Dosage: UNK
     Route: 042
  6. METOPROLOL [Suspect]
     Active Substance: METOPROLOL
     Indication: Torsade de pointes
     Dosage: UNK
     Route: 042
  7. ISOPROTERENOL [Suspect]
     Active Substance: ISOPROTERENOL
     Indication: Arrhythmic storm
     Dosage: UNK
     Route: 042
  8. PROPRANOLOL [Suspect]
     Active Substance: PROPRANOLOL HYDROCHLORIDE
     Indication: Long QT syndrome
     Dosage: UNK
     Route: 065
  9. AJMALINE [Suspect]
     Active Substance: AJMALINE
     Indication: Investigation
     Dosage: UNK
     Route: 065

REACTIONS (2)
  - Drug ineffective [Unknown]
  - Maternal exposure during breast feeding [Recovered/Resolved]
